FAERS Safety Report 8039267-X (Version None)
Quarter: 2012Q1

REPORT INFORMATION
  Report Type: 
  Country: None (occurrence: None)
  Receive Date: 20120111
  Receipt Date: 20111205
  Transmission Date: 20120608
  Serious: No
  Sender: FDA-Public Use
  Company Number: US-AMGEN-USASP2011064731

PATIENT
  Age: 62 Year
  Sex: Male

DRUGS (5)
  1. LISINOPRIL [Concomitant]
     Dosage: 20 MG, UNK
  2. HYDROCODONE BITARTRATE [Concomitant]
     Dosage: 7.5-650
  3. METHOTREXATE [Concomitant]
     Dosage: 2.5 MG, UNK
  4. ENBREL [Suspect]
     Indication: RHEUMATOID ARTHRITIS
     Dosage: 50 MG, QWK
     Route: 058
     Dates: start: 20110330
  5. SIMVASTATIN [Concomitant]
     Dosage: 40 MG, UNK

REACTIONS (6)
  - JOINT STIFFNESS [None]
  - HAEMATOCHEZIA [None]
  - INJECTION SITE HAEMORRHAGE [None]
  - ARTHRALGIA [None]
  - INCORRECT DOSE ADMINISTERED [None]
  - RHEUMATOID ARTHRITIS [None]
